FAERS Safety Report 7451695-X (Version None)
Quarter: 2011Q2

REPORT INFORMATION
  Report Type: 
  Country: None (occurrence: None)
  Receive Date: 20110502
  Receipt Date: 20100716
  Transmission Date: 20111010
  Serious: No
  Sender: FDA-Public Use
  Company Number: US-ASTRAZENECA-2010SE33328

PATIENT
  Sex: Female

DRUGS (1)
  1. NEXIUM [Suspect]
     Route: 048
     Dates: start: 20100501

REACTIONS (3)
  - VITAMIN B12 DECREASED [None]
  - BLOOD CALCIUM DECREASED [None]
  - BLOOD IRON DECREASED [None]
